FAERS Safety Report 15418824 (Version 1)
Quarter: 2018Q3

REPORT INFORMATION
  Report Type: Spontaneous
  Country: US (occurrence: US)
  Receive Date: 20180924
  Receipt Date: 20180924
  Transmission Date: 20181010
  Serious: No
  Sender: FDA-Public Use
  Company Number: US-SA-2018SA263912

PATIENT
  Sex: Female

DRUGS (1)
  1. KEVZARA [Suspect]
     Active Substance: SARILUMAB
     Indication: RHEUMATOID ARTHRITIS
     Dosage: 200 MG, EVERY 14 DAYS
     Route: 058
     Dates: start: 20180426

REACTIONS (3)
  - Pain of skin [Unknown]
  - Alopecia [Unknown]
  - Drug ineffective [Unknown]
